FAERS Safety Report 8604132-3 (Version None)
Quarter: 2012Q3

REPORT INFORMATION
  Report Type: 
  Country: None (occurrence: None)
  Receive Date: 20120820
  Receipt Date: 20120815
  Transmission Date: 20120928
  Serious: Yes (Other)
  Sender: FDA-Public Use
  Company Number: US-AMGEN-USASP2012051803

PATIENT
  Age: 70 Year
  Sex: Male

DRUGS (2)
  1. ENBREL [Suspect]
     Indication: PSORIATIC ARTHROPATHY
  2. ENBREL [Suspect]
     Indication: PSORIASIS
     Dosage: 50 MG, QWK

REACTIONS (5)
  - NEOPLASM MALIGNANT [None]
  - URINARY TRACT INFECTION [None]
  - PSORIASIS [None]
  - PSORIATIC ARTHROPATHY [None]
  - ANAEMIA [None]
